FAERS Safety Report 7909152-X (Version None)
Quarter: 2011Q4

REPORT INFORMATION
  Report Type: 
  Country: None (occurrence: None)
  Receive Date: 20111111
  Receipt Date: 20110131
  Transmission Date: 20120403
  Serious: No
  Sender: FDA-Public Use
  Company Number: US-GLAXOSMITHKLINE-A0911760A

PATIENT
  Age: 73 Year
  Sex: Female

DRUGS (3)
  1. UNSPECIFIED MEDICATION [Suspect]
     Indication: HYPERTENSION
     Dosage: 1TAB PER DAY
     Route: 048
     Dates: start: 20101214
  2. GELNIQUE [Suspect]
     Indication: HYPERTONIC BLADDER
     Dosage: 100MGD PER DAY
     Route: 061
     Dates: start: 20101221
  3. CARVEDILOL [Suspect]
     Indication: HYPERTENSION
     Dosage: 12.5MG TWICE PER DAY
     Route: 048

REACTIONS (2)
  - BLOOD PRESSURE INCREASED [None]
  - DRUG INEFFECTIVE [None]
